FAERS Safety Report 8251883 (Version 2)
Quarter: 2012Q4

REPORT INFORMATION
  Report Type: 
  Country: US (occurrence: US)
  Receive Date: 20111117
  Receipt Date: 20121023
  Transmission Date: 20130627
  Serious: No
  Sender: FDA-Public Use
  Company Number: US-AMGEN-USASP2011008950

PATIENT
  Age: 48 Year
  Sex: Female
  Weight: 57.6 kg

DRUGS (3)
  1. ENBREL [Suspect]
     Indication: RHEUMATOID ARTHRITIS
     Dosage: 50 mg, qwk
     Route: 058
     Dates: start: 200912, end: 201102
  2. MTX                                /00113801/ [Concomitant]
     Dosage: UNK
  3. HUMIRA [Concomitant]

REACTIONS (4)
  - Skin hyperpigmentation [Not Recovered/Not Resolved]
  - Periproctitis [Not Recovered/Not Resolved]
  - Injection site discomfort [Not Recovered/Not Resolved]
  - Drug eruption [Unknown]
